FAERS Safety Report 8959733 (Version 1)
Quarter: 2012Q4

REPORT INFORMATION
  Report Type: 
  Country: CN (occurrence: CN)
  Receive Date: 20121212
  Receipt Date: 20121212
  Transmission Date: 20130627
  Serious: Yes (Life-Threatening, Other)
  Sender: FDA-Public Use
  Company Number: CN-BAYER-2012-130436

PATIENT
  Age: 73 Year
  Sex: Male
  Weight: 60 kg

DRUGS (1)
  1. MAGNEVIST [Suspect]
     Indication: LIVER CARCINOMA
     Dosage: 14 ml, UNK
     Route: 042
     Dates: start: 20121211, end: 20121211

REACTIONS (6)
  - Pulse absent [Recovering/Resolving]
  - Productive cough [Recovering/Resolving]
  - Extrasystoles [None]
  - Blood potassium decreased [None]
  - Renal injury [None]
  - Loss of consciousness [Recovering/Resolving]
